FAERS Safety Report 9316197 (Version 1)
Quarter: 2013Q2

REPORT INFORMATION
  Report Type: Spontaneous
  Country: US (occurrence: None)
  Receive Date: 20130522
  Receipt Date: 20130522
  Transmission Date: 20140414
  Serious: Yes (Other)
  Sender: FDA-Public Use
  Company Number: TPA2013A03518

PATIENT
  Sex: 0

DRUGS (1)
  1. PIOGLITAZONE HYDROCHLORIDE [Suspect]

REACTIONS (2)
  - Haemorrhage intracranial [None]
  - Neck pain [None]
